FAERS Safety Report 10241927 (Version 1)
Quarter: 2014Q2

REPORT INFORMATION
  Report Type: Spontaneous
  Country: US (occurrence: None)
  Receive Date: 20140612
  Receipt Date: 20140612
  Transmission Date: 20141212
  Serious: Yes (Hospitalization, Other)
  Sender: FDA-Public Use
  Company Number: UNT-2014-001463

PATIENT
  Age: 47 Year
  Sex: Female
  Weight: 49.9 kg

DRUGS (2)
  1. REMODULIN [Suspect]
     Indication: COR PULMONALE CHRONIC
     Dosage: 0.061UG/KG/MIN, CONTINUOUS
     Route: 058
     Dates: start: 20131105
  2. ADCIRCA (TADALAFIL) [Concomitant]

REACTIONS (2)
  - Localised infection [None]
  - Lung infection [None]
